FAERS Safety Report 16121910 (Version 9)
Quarter: 2020Q4

REPORT INFORMATION
  Report Type: Report from Study
  Country: DE (occurrence: DE)
  Receive Date: 20190327
  Receipt Date: 20201123
  Transmission Date: 20210113
  Serious: Yes (Hospitalization)
  Sender: FDA-Public Use
  Company Number: DE-ROCHE-2288005

PATIENT
  Age: 65 Year
  Sex: Female
  Weight: 75 kg

DRUGS (11)
  1. L-THYROX [Concomitant]
     Active Substance: LEVOTHYROXINE SODIUM
  2. SUMATRIPTAN. [Concomitant]
     Active Substance: SUMATRIPTAN
  3. TORASEMID [Concomitant]
     Active Substance: TORSEMIDE
  4. COBIMETINIB. [Suspect]
     Active Substance: COBIMETINIB
     Indication: METASTATIC MALIGNANT MELANOMA
     Dosage: ON 20/MAR/2020, SHE RECEIVED LAST DOSE OF COBIMETINIB PRIOR TO ONSET OF CPK INCREASED AND LEFT VENTR
     Route: 048
     Dates: start: 20190311, end: 20190321
  5. DULCOLAX (BISACODYL) [Concomitant]
     Active Substance: BISACODYL
  6. PREGABALIN. [Concomitant]
     Active Substance: PREGABALIN
  7. MCP [Concomitant]
     Active Substance: METOCLOPRAMIDE HYDROCHLORIDE
  8. IBEROGAST [Concomitant]
     Active Substance: HERBALS
     Dosage: 20DROPS
  9. BUSCOPAN [Concomitant]
     Active Substance: BUTYLSCOPOLAMINE BROMIDE
  10. VEMURAFENIB. [Suspect]
     Active Substance: VEMURAFENIB
     Indication: METASTATIC MALIGNANT MELANOMA
     Dosage: ON 20/MAR/2019, SHE RECEIVED LAST DOSE OF VEMURAFENIB PRIOR TO ONSET OF CPK INCREASED.?ON 21/MAR/201
     Route: 048
     Dates: start: 20190311
  11. ELIQUIS [Concomitant]
     Active Substance: APIXABAN

REACTIONS (2)
  - Left ventricular dysfunction [Recovered/Resolved]
  - Blood creatine phosphokinase increased [Recovered/Resolved]

NARRATIVE: CASE EVENT DATE: 20190320
